FAERS Safety Report 16242041 (Version 1)
Quarter: 2019Q2

REPORT INFORMATION
  Report Type: Report from Study
  Country: None (occurrence: US)
  Receive Date: 20190426
  Receipt Date: 20190426
  Transmission Date: 20190711
  Serious: Yes (Other)
  Sender: FDA-Public Use
  Company Number: US-ABBVIE-19K-163-2753252-00

PATIENT
  Sex: Male

DRUGS (1)
  1. HUMIRA [Suspect]
     Active Substance: ADALIMUMAB
     Indication: PSORIATIC ARTHROPATHY
     Route: 058

REACTIONS (9)
  - Heart rate decreased [Unknown]
  - Asthenia [Unknown]
  - Loss of consciousness [Unknown]
  - Dizziness [Unknown]
  - Injection site pain [Unknown]
  - Hyperhidrosis [Unknown]
  - Disorientation [Unknown]
  - Mydriasis [Unknown]
  - Hypopnoea [Unknown]
